FAERS Safety Report 17083359 (Version 1)
Quarter: 2019Q4

REPORT INFORMATION
  Report Type: Spontaneous
  Country: FR (occurrence: FR)
  Receive Date: 20191127
  Receipt Date: 20191127
  Transmission Date: 20200122
  Serious: Yes (Other)
  Sender: FDA-Public Use
  Company Number: FR-NAPPMUNDI-GBR-2019-0073226

PATIENT
  Age: 67 Year
  Sex: Male
  Weight: 99 kg

DRUGS (20)
  1. ESIDREX [Concomitant]
     Active Substance: HYDROCHLOROTHIAZIDE
  2. ALLOPURINOL. [Concomitant]
     Active Substance: ALLOPURINOL
  3. REVOLADE                           /06086401/ [Concomitant]
     Active Substance: ELTROMBOPAG
  4. PLAVIX [Concomitant]
     Active Substance: CLOPIDOGREL BISULFATE
  5. L THYROXINE [Concomitant]
     Active Substance: LEVOTHYROXINE SODIUM
  6. PARACETAMOL [Concomitant]
     Active Substance: ACETAMINOPHEN
  7. OXYCODONE HYDROCHLORIDE. [Suspect]
     Active Substance: OXYCODONE HYDROCHLORIDE
     Indication: POLYARTHRITIS
     Dosage: 40 MG, DAILY
     Route: 048
     Dates: start: 20190827, end: 20190904
  8. ACUPAN [Suspect]
     Active Substance: NEFOPAM HYDROCHLORIDE
     Indication: POLYARTHRITIS
     Dosage: 120 MG, DAILY
     Route: 042
     Dates: start: 20190827, end: 20190904
  9. LASILIX                            /00032601/ [Concomitant]
     Active Substance: FUROSEMIDE
  10. LANTUS [Concomitant]
     Active Substance: INSULIN GLARGINE
  11. KAYEXALATE [Concomitant]
     Active Substance: SODIUM POLYSTYRENE SULFONATE
  12. SERESTA [Concomitant]
     Active Substance: OXAZEPAM
  13. CALCIPARINE [Concomitant]
     Active Substance: HEPARIN CALCIUM
  14. LEXOMIL [Concomitant]
     Active Substance: BROMAZEPAM
  15. NOVORAPID [Concomitant]
     Active Substance: INSULIN ASPART
  16. PRAVASTATINE [Concomitant]
     Active Substance: PRAVASTATIN
  17. ADVAGRAF [Suspect]
     Active Substance: TACROLIMUS
     Indication: RENAL TRANSPLANT
     Dosage: 6 MG, DAILY
     Route: 048
     Dates: start: 20190823, end: 20190904
  18. VASTEN                             /00880402/ [Concomitant]
     Active Substance: PRAVASTATIN SODIUM
  19. CORTANCYL [Concomitant]
     Active Substance: PREDNISONE
  20. TAMSULOSIN [Concomitant]
     Active Substance: TAMSULOSIN

REACTIONS (2)
  - Movement disorder [Recovered/Resolved]
  - Confusional state [Recovered/Resolved]

NARRATIVE: CASE EVENT DATE: 20190828
